FAERS Safety Report 8544879-0 (Version None)
Quarter: 2012Q3

REPORT INFORMATION
  Report Type: 
  Country: None (occurrence: None)
  Receive Date: 20120727
  Receipt Date: 20120723
  Transmission Date: 20120928
  Serious: Yes (Hospitalization)
  Sender: FDA-Public Use
  Company Number: GB-ROCHE-1091593

PATIENT
  Sex: Male
  Weight: 46 kg

DRUGS (4)
  1. XELODA [Suspect]
     Indication: GASTRIC CANCER
     Dosage: RECENT DOSE TAKEN:45MG, 150MG, DATE OF DRUG TAKEN PRIOR TO ONSET OF AE:21/FEB/2012
     Route: 048
     Dates: start: 20111220
  2. CISPLATIN [Suspect]
     Indication: GASTRIC CANCER
     Dosage: RECENR DOSE TAKEN:100MG, DATE OF DRUG TAKEN PRIOR TO ONSET OF AE:31/JAN/2012
     Route: 042
     Dates: start: 20111220
  3. AVASTIN [Suspect]
     Indication: GASTRIC CANCER
     Dosage: RECENT DOSE TAKEN:425MG,DATE OF DRUG TAKEN PRIOR TO ONSET OF AE:31/FEB/2012
     Route: 042
     Dates: start: 20111220
  4. EPIRUBICIN HYDROCHLORIDE [Suspect]
     Indication: GASTRIC CANCER
     Dosage: RECENT DOSE TAKEN:80MG, DATE OF DRUG TAKEN PRIOR TO ONSET OF AE:31/JAN/2012
     Route: 042
     Dates: start: 20111220

REACTIONS (2)
  - ATRIAL FIBRILLATION [None]
  - ANASTOMOTIC LEAK [None]
